FAERS Safety Report 7170101-6 (Version None)
Quarter: 2010Q4

REPORT INFORMATION
  Report Type: 
  Country: None (occurrence: None)
  Receive Date: 20101217
  Receipt Date: 20101116
  Transmission Date: 20110411
  Serious: Yes (Hospitalization)
  Sender: FDA-Public Use
  Company Number: CA-ASTRAZENECA-2010SE32830

PATIENT
  Age: 595 Month
  Sex: Male

DRUGS (18)
  1. CRESTOR [Suspect]
     Indication: BLOOD CHOLESTEROL INCREASED
     Route: 048
     Dates: start: 20091001
  2. CRESTOR [Suspect]
     Indication: ISCHAEMIC HEART DISEASE PROPHYLAXIS
     Route: 048
     Dates: start: 20091001
  3. CRESTOR [Suspect]
     Route: 048
  4. CRESTOR [Suspect]
     Route: 048
  5. CRESTOR [Suspect]
     Route: 048
     Dates: start: 20100201, end: 20100501
  6. CRESTOR [Suspect]
     Route: 048
     Dates: start: 20100201, end: 20100501
  7. ASPIRIN [Concomitant]
     Indication: MYOCARDIAL INFARCTION
  8. ASPIRIN [Concomitant]
  9. BISOPROLOL [Concomitant]
  10. PLAVIX [Concomitant]
     Indication: MYOCARDIAL INFARCTION
     Dates: start: 20090801
  11. RAMIPRIL [Concomitant]
     Indication: MYOCARDIAL INFARCTION
     Route: 048
     Dates: start: 20090801
  12. EZETROL [Concomitant]
  13. FENOFIBRATE [Concomitant]
  14. MONOCOR [Concomitant]
  15. ALTACE [Concomitant]
  16. CIPRALEX [Concomitant]
  17. ATIVAN [Concomitant]
     Dosage: 1 MG QHS PRN
  18. NITROSPRAY [Concomitant]
     Dosage: PRN

REACTIONS (12)
  - ARTHRALGIA [None]
  - CARTILAGE INJURY [None]
  - CHEST DISCOMFORT [None]
  - CHEST PAIN [None]
  - FATIGUE [None]
  - LOSS OF CONSCIOUSNESS [None]
  - MUSCLE ATROPHY [None]
  - MUSCULAR WEAKNESS [None]
  - MYALGIA [None]
  - NAUSEA [None]
  - PAIN IN EXTREMITY [None]
  - RHABDOMYOLYSIS [None]
